FAERS Safety Report 26183776 (Version 1)
Quarter: 2025Q4

REPORT INFORMATION
  Report Type: Report from Study
  Country: CA (occurrence: CA)
  Receive Date: 20251221
  Receipt Date: 20251221
  Transmission Date: 20260117
  Serious: Yes (Other)
  Sender: ABBVIE
  Company Number: CA-ABBVIE-6425081

PATIENT
  Sex: Female

DRUGS (4)
  1. BOTOX [Suspect]
     Active Substance: ONABOTULINUMTOXINA
     Indication: Migraine
     Dosage: TIME INTERVAL: AS NECESSARY: (1X200) INTERNATIONAL UNIT?- EVERY 3 MONTHS
     Route: 065
     Dates: start: 20240827, end: 20240827
  2. INDERAL [Concomitant]
     Active Substance: PROPRANOLOL HYDROCHLORIDE
     Indication: Product used for unknown indication
  3. SUMATRIPTAN [Concomitant]
     Active Substance: SUMATRIPTAN
     Indication: Product used for unknown indication
     Dosage: TIME INTERVAL: AS NECESSARY
  4. ESCITALOPRAM [Concomitant]
     Active Substance: ESCITALOPRAM OXALATE
     Indication: Product used for unknown indication

REACTIONS (7)
  - Sepsis [Unknown]
  - Migraine [Not Recovered/Not Resolved]
  - Maternal exposure during pregnancy [Unknown]
  - Depression [Unknown]
  - Endometriosis [Unknown]
  - Mastitis [Unknown]
  - Live birth [Unknown]
